FAERS Safety Report 20782684 (Version 2)
Quarter: 2022Q2

REPORT INFORMATION
  Report Type: Spontaneous
  Country: TR (occurrence: TR)
  Receive Date: 20220504
  Receipt Date: 20220504
  Transmission Date: 20220721
  Serious: Yes (Death, Life-Threatening, Other)
  Sender: FDA-Public Use
  Company Number: TR-PFIZER INC-202200619132

PATIENT
  Age: 3 Year
  Sex: Male

DRUGS (9)
  1. METHYLPREDNISOLONE ACETATE [Suspect]
     Active Substance: METHYLPREDNISOLONE ACETATE
     Indication: Acute haemorrhagic leukoencephalitis
     Dosage: 30 MG/KG, DAILY (7 DAYS; ON THE FIRST DAY OF HOSPITALIZATION WAS INITIATED)
     Route: 042
  2. LEVETIRACETAM [Suspect]
     Active Substance: LEVETIRACETAM
     Indication: Seizure
     Dosage: UNK
     Route: 042
  3. LEVETIRACETAM [Suspect]
     Active Substance: LEVETIRACETAM
     Dosage: UNK (ADDITIONAL LEVETIRACETAM BOLUS)
     Route: 040
  4. DIAZEPAM [Suspect]
     Active Substance: DIAZEPAM
     Indication: Seizure
     Dosage: UNK
  5. MANNITOL [Suspect]
     Active Substance: MANNITOL
     Dosage: UNK (1G/KG ONLY 2 TIMES (11TH DAY OF HOSPITALIZATION)
  6. SODIUM CHLORIDE [Suspect]
     Active Substance: SODIUM CHLORIDE
     Dosage: UNK (1 ML/KG AT 3% SALINE FOR 4 TIMES AND THEN INFUSION DOSE OF 1 ML/ KG/H)
     Route: 040
  7. HUMAN IMMUNOGLOBULIN G [Suspect]
     Active Substance: HUMAN IMMUNOGLOBULIN G
     Dosage: UNK (TOTAL 2 G/KG; 5 DAYS (11TH DAY OF HOSPITALIZATION)
     Route: 042
  8. ACYCLOVIR [Concomitant]
     Active Substance: ACYCLOVIR
     Indication: Antiviral treatment
     Dosage: UNK
  9. CEFTRIAXONE [Concomitant]
     Active Substance: CEFTRIAXONE
     Indication: Antibiotic therapy
     Dosage: UNK

REACTIONS (10)
  - Drug ineffective for unapproved indication [Fatal]
  - Off label use [Fatal]
  - Brain death [Fatal]
  - Diabetes insipidus [Fatal]
  - Decerebrate posture [Unknown]
  - Bradycardia [Unknown]
  - Brain oedema [Unknown]
  - Brain herniation [Unknown]
  - Anisocoria [Unknown]
  - Off label use [Unknown]
